FAERS Safety Report 14638866 (Version 1)
Quarter: 2018Q1

REPORT INFORMATION
  Report Type: Spontaneous
  Country: JP (occurrence: JP)
  Receive Date: 20180315
  Receipt Date: 20180315
  Transmission Date: 20180509
  Serious: Yes (Other)
  Sender: FDA-Public Use
  Company Number: JP-ROCHE-2076614

PATIENT
  Age: 86 Year
  Sex: Male

DRUGS (8)
  1. TAMIFLU [Suspect]
     Active Substance: OSELTAMIVIR PHOSPHATE
     Route: 048
     Dates: start: 20180120, end: 20180120
  2. MEMARY [Concomitant]
     Active Substance: MEMANTINE HYDROCHLORIDE
     Route: 048
     Dates: start: 20141117
  3. TAMIFLU [Suspect]
     Active Substance: OSELTAMIVIR PHOSPHATE
     Indication: INFLUENZA
     Route: 048
     Dates: start: 20180118, end: 20180119
  4. LAFUTIDINE [Concomitant]
     Active Substance: LAFUTIDINE
     Route: 048
     Dates: start: 20141211
  5. REBAMIPIDE [Concomitant]
     Active Substance: REBAMIPIDE
     Route: 048
     Dates: start: 20141211
  6. ATORVASTATIN [Concomitant]
     Active Substance: ATORVASTATIN
     Route: 048
  7. BENZBROMARONE [Concomitant]
     Active Substance: BENZBROMARONE
     Route: 048
  8. TENAXIL [Concomitant]
     Active Substance: INDAPAMIDE
     Route: 048

REACTIONS (2)
  - Abnormal behaviour [Recovered/Resolved]
  - Rib fracture [Unknown]

NARRATIVE: CASE EVENT DATE: 20180118
